FAERS Safety Report 7842360-5 (Version None)
Quarter: 2011Q4

REPORT INFORMATION
  Report Type: 
  Country: None (occurrence: None)
  Receive Date: 20111025
  Receipt Date: 20111018
  Transmission Date: 20120403
  Serious: Yes (Other)
  Sender: FDA-Public Use
  Company Number: GB-UCBSA-043684

PATIENT
  Age: 45 Year
  Sex: Female
  Weight: 62.2 kg

DRUGS (7)
  1. ORAL CONTRACEPTIVE [Concomitant]
     Indication: CONTRACEPTION
     Route: 048
  2. CIMZIA [Suspect]
     Indication: RHEUMATOID ARTHRITIS
     Route: 058
  3. VOLTAREN [Concomitant]
     Indication: ANALGESIC THERAPY
     Route: 048
  4. GABAPENTIN [Concomitant]
     Indication: ANALGESIC THERAPY
     Route: 048
  5. METHOTREXATE [Concomitant]
     Indication: RHEUMATOID ARTHRITIS
     Dosage: 7.5 MG
     Route: 048
     Dates: start: 20110501
  6. FOLIC ACID [Concomitant]
     Indication: RHEUMATOID ARTHRITIS
     Dosage: 5 MG
     Route: 048
     Dates: start: 20110501
  7. CIMZIA [Suspect]
     Route: 058

REACTIONS (2)
  - BREAST ENLARGEMENT [None]
  - BREAST TENDERNESS [None]
